FAERS Safety Report 13325503 (Version 1)
Quarter: 2017Q1

REPORT INFORMATION
  Report Type: Spontaneous
  Country: US (occurrence: US)
  Receive Date: 20170310
  Receipt Date: 20170310
  Transmission Date: 20170428
  Serious: No
  Sender: FDA-Public Use
  Company Number: US-PERRIGO-16US020311

PATIENT
  Sex: Male

DRUGS (1)
  1. TESTOSTERONE CYPIONATE. [Suspect]
     Active Substance: TESTOSTERONE CYPIONATE
     Indication: WEIGHT DECREASED
     Dosage: 200 MG, TWICE MONTHLY
     Route: 030
     Dates: start: 2012, end: 201609

REACTIONS (5)
  - Off label use [Recovered/Resolved]
  - Myosclerosis [Unknown]
  - Pain in extremity [Unknown]
  - Erythema [Unknown]
  - Drug administered at inappropriate site [Recovered/Resolved]

NARRATIVE: CASE EVENT DATE: 2012
